FAERS Safety Report 9830458 (Version 1)
Quarter: 2014Q1

REPORT INFORMATION
  Report Type: Report from Study
  Country: CA (occurrence: CA)
  Receive Date: 20140120
  Receipt Date: 20140120
  Transmission Date: 20141002
  Serious: Yes (Life-Threatening)
  Sender: FDA-Public Use
  Company Number: CA-JNJFOC-20140108355

PATIENT
  Age: 56 Year
  Sex: Female
  Weight: 60 kg

DRUGS (8)
  1. STELARA [Suspect]
     Indication: PSORIASIS
     Route: 058
     Dates: start: 20131211
  2. REMICADE [Suspect]
     Indication: PSORIASIS
     Route: 042
     Dates: start: 20130327, end: 20131004
  3. RAPTIVA [Suspect]
     Indication: PRODUCT USED FOR UNKNOWN INDICATION
     Route: 065
  4. HUMIRA [Suspect]
     Indication: PRODUCT USED FOR UNKNOWN INDICATION
     Route: 065
  5. VALSARTAN [Concomitant]
     Route: 065
  6. ACETYLSALICYLIC ACID [Concomitant]
     Route: 065
  7. LIPIDAL [Concomitant]
     Route: 065
  8. NOVO VENLAFAXINE [Concomitant]
     Route: 065

REACTIONS (1)
  - Pancreatic carcinoma metastatic [Not Recovered/Not Resolved]
